FAERS Safety Report 17693486 (Version 10)
Quarter: 2022Q3

REPORT INFORMATION
  Report Type: Report from Study
  Country: IN (occurrence: IN)
  Receive Date: 20200422
  Receipt Date: 20220906
  Transmission Date: 20221027
  Serious: Yes (Hospitalization, Disabling, Congenital Anomaly, Other)
  Sender: FDA-Public Use
  Company Number: NVSC2020IN076612

PATIENT
  Age: 55 Year
  Sex: Male
  Weight: 53.1 kg

DRUGS (9)
  1. CANAKINUMAB [Suspect]
     Active Substance: CANAKINUMAB
     Indication: Non-small cell lung cancer
     Dosage: UNK
     Route: 058
     Dates: start: 20191209
  2. PEMETREXED DISODIUM [Suspect]
     Active Substance: PEMETREXED DISODIUM
     Indication: Non-small cell lung cancer
     Dosage: 800 MG
     Route: 042
     Dates: start: 20191209
  3. PEMBROLIZUMAB [Suspect]
     Active Substance: PEMBROLIZUMAB
     Indication: Non-small cell lung cancer
     Dosage: 200 MG
     Route: 042
     Dates: start: 20191209
  4. CIPLOX-TZ [Concomitant]
     Indication: Diarrhoea
     Dosage: UNK
     Route: 065
     Dates: start: 20200310
  5. LOSAR-H [Concomitant]
     Indication: Coronary artery disease
     Dosage: UNK
     Route: 065
     Dates: start: 20180101
  6. LOSAR-H [Concomitant]
     Indication: Hypertension
  7. ALPRAZOLAM [Concomitant]
     Active Substance: ALPRAZOLAM
     Indication: Prophylaxis
     Dosage: UNK
     Route: 065
     Dates: start: 20200213
  8. LEVERA [Concomitant]
     Dosage: UNK
     Route: 065
     Dates: start: 20201112
  9. COREX T [Concomitant]
     Indication: Prophylaxis
     Dosage: UNK
     Route: 065
     Dates: start: 20200213

REACTIONS (2)
  - Vomiting [Recovered/Resolved]
  - Urinary tract infection [Recovered/Resolved]

NARRATIVE: CASE EVENT DATE: 20200315
